FAERS Safety Report 18886958 (Version 1)
Quarter: 2021Q1

REPORT INFORMATION
  Report Type: Spontaneous
  Country: US (occurrence: US)
  Receive Date: 20210212
  Receipt Date: 20210212
  Transmission Date: 20210420
  Serious: Yes (Death, Hospitalization)
  Sender: FDA-Public Use
  Company Number: US-009507513-2102USA004096

PATIENT
  Age: 57 Year
  Sex: Male
  Weight: 66.2 kg

DRUGS (16)
  1. SIMVASTATIN. [Concomitant]
     Active Substance: SIMVASTATIN
  2. AVALIDE [Concomitant]
     Active Substance: HYDROCHLOROTHIAZIDE\IRBESARTAN
  3. JANUMET [Suspect]
     Active Substance: METFORMIN HYDROCHLORIDE\SITAGLIPTIN PHOSPHATE
     Dosage: 50/1000 MG BID
     Route: 065
     Dates: start: 20090122
  4. AMARYL [Concomitant]
     Active Substance: GLIMEPIRIDE
  5. AMLODIPINE [Concomitant]
     Active Substance: AMLODIPINE BESYLATE
  6. FEXOFENADINE HYDROCHLORIDE. [Concomitant]
     Active Substance: FEXOFENADINE HYDROCHLORIDE
  7. JANUVIA [Suspect]
     Active Substance: SITAGLIPTIN PHOSPHATE
     Dosage: UNK
     Route: 065
     Dates: start: 200710, end: 200804
  8. BYETTA [Suspect]
     Active Substance: EXENATIDE
     Indication: TYPE 2 DIABETES MELLITUS
     Dosage: REDUCED TO 5MCG BID
     Route: 058
     Dates: start: 200908, end: 201009
  9. BYETTA [Suspect]
     Active Substance: EXENATIDE
     Dosage: 20 MICROGRAM, QD
     Route: 065
     Dates: start: 20100428
  10. NIFEDIPINE. [Concomitant]
     Active Substance: NIFEDIPINE
  11. NAPROSYN [Concomitant]
     Active Substance: NAPROXEN
  12. NEXIUM [Concomitant]
     Active Substance: ESOMEPRAZOLE MAGNESIUM
  13. JANUMET [Suspect]
     Active Substance: METFORMIN HYDROCHLORIDE\SITAGLIPTIN PHOSPHATE
     Dosage: 100 MILLIGRAM, QD
     Route: 065
     Dates: start: 20071212
  14. JANUMET [Suspect]
     Active Substance: METFORMIN HYDROCHLORIDE\SITAGLIPTIN PHOSPHATE
     Dosage: UNK
     Route: 065
     Dates: start: 200804, end: 200908
  15. ACTOPLUS MET [Concomitant]
     Active Substance: METFORMIN HYDROCHLORIDE\PIOGLITAZONE HYDROCHLORIDE
     Indication: TYPE 2 DIABETES MELLITUS
  16. BYETTA [Suspect]
     Active Substance: EXENATIDE
     Dosage: 10 MICROGRAM, QD
     Route: 065

REACTIONS (7)
  - Pancreatic carcinoma metastatic [Fatal]
  - Oesophageal carcinoma stage 0 [Unknown]
  - Cardiogenic shock [Fatal]
  - Septic shock [Fatal]
  - Hepatic cancer [Unknown]
  - Respiratory failure [Fatal]
  - Myocardial infarction [Fatal]

NARRATIVE: CASE EVENT DATE: 201012
